FAERS Safety Report 4837268-3 (Version None)
Quarter: 2005Q4

REPORT INFORMATION
  Report Type: 
  Country: None (occurrence: None)
  Receive Date: 20051122
  Receipt Date: 20051110
  Transmission Date: 20060501
  Serious: Yes (Hospitalization)
  Sender: FDA-Public Use
  Company Number: S05-USA-04936-01

PATIENT
  Sex: Female

DRUGS (1)
  1. NAMENDA [Suspect]
     Indication: GLOBAL AMNESIA

REACTIONS (1)
  - HOSPITALISATION [None]
